FAERS Safety Report 8914868 (Version 1)
Quarter: 2012Q4

REPORT INFORMATION
  Report Type: 
  Country: US (occurrence: US)
  Receive Date: 20121119
  Receipt Date: 20121119
  Transmission Date: 20130627
  Serious: Yes (Disabling)
  Sender: FDA-Public Use
  Company Number: PHHY2011US12145

PATIENT
  Age: 51 Year
  Sex: Male

DRUGS (2)
  1. EXTAVIA [Suspect]
     Indication: MULTIPLE SCLEROSIS
     Dosage: 0.187 mg, QOD
     Route: 058
     Dates: start: 20101018
  2. COPAXONE [Concomitant]
     Route: 030
     Dates: start: 200909, end: 201010

REACTIONS (6)
  - Walking disability [Unknown]
  - Vertigo [Not Recovered/Not Resolved]
  - Visual acuity reduced [Not Recovered/Not Resolved]
  - Muscle twitching [Not Recovered/Not Resolved]
  - Somnolence [Recovering/Resolving]
  - Injection site swelling [Recovering/Resolving]
